FAERS Safety Report 15463911 (Version 5)
Quarter: 2020Q3

REPORT INFORMATION
  Report Type: Report from Study
  Country: US (occurrence: US)
  Receive Date: 20181004
  Receipt Date: 20200912
  Transmission Date: 20201102
  Serious: Yes (Life-Threatening, Hospitalization, Disabling, Other)
  Sender: FDA-Public Use
  Company Number: US-AMGEN-USASL2018034707

PATIENT
  Age: 61 Year
  Sex: Female
  Weight: 68 kg

DRUGS (7)
  1. NPLATE [Suspect]
     Active Substance: ROMIPLOSTIM
     Dosage: 600 MICROGRAM
     Route: 065
     Dates: start: 201808
  2. NPLATE [Suspect]
     Active Substance: ROMIPLOSTIM
     Dosage: 1000 MICROGRAM
     Route: 065
  3. NPLATE [Suspect]
     Active Substance: ROMIPLOSTIM
     Dosage: 1000 MICROGRAM, QWK
     Route: 065
     Dates: end: 2017
  4. NPLATE [Suspect]
     Active Substance: ROMIPLOSTIM
     Dosage: 300 MICROGRAM, AS NECESSARY
     Route: 065
     Dates: start: 20180911
  5. NPLATE [Suspect]
     Active Substance: ROMIPLOSTIM
     Dosage: 750 MICROGRAM
     Route: 065
  6. LITHIUM. [Concomitant]
     Active Substance: LITHIUM
     Indication: ANTIDEPRESSANT THERAPY
  7. NPLATE [Suspect]
     Active Substance: ROMIPLOSTIM
     Indication: IMMUNE THROMBOCYTOPENIA
     Dosage: 110 MICROGRAM, QWK
     Route: 065

REACTIONS (15)
  - Epistaxis [Unknown]
  - Cerebral haemorrhage [Unknown]
  - Anaphylactic shock [Unknown]
  - Emotional distress [Unknown]
  - Vomiting [Recovered/Resolved]
  - Platelet count decreased [Unknown]
  - Eye contusion [Unknown]
  - Loss of consciousness [Unknown]
  - Ill-defined disorder [Unknown]
  - Intentional product misuse [Unknown]
  - Petechiae [Recovered/Resolved]
  - Contusion [Recovered/Resolved]
  - Platelet count increased [Unknown]
  - Therapeutic product effect decreased [Unknown]
  - Blood pressure increased [Unknown]

NARRATIVE: CASE EVENT DATE: 2018
